FAERS Safety Report 12440823 (Version 1)
Quarter: 2016Q2

REPORT INFORMATION
  Report Type: Spontaneous
  Country: US (occurrence: US)
  Receive Date: 20160607
  Receipt Date: 20160607
  Transmission Date: 20160815
  Serious: No
  Sender: FDA-Public Use
  Company Number: US-TEVA-664523ACC

PATIENT
  Sex: Female

DRUGS (1)
  1. PLAN B ONE-STEP [Suspect]
     Active Substance: LEVONORGESTREL
     Indication: POST COITAL CONTRACEPTION
     Route: 065

REACTIONS (16)
  - Dizziness [Unknown]
  - Vaginal haemorrhage [Unknown]
  - Feeling abnormal [Unknown]
  - Nausea [Unknown]
  - Fatigue [Unknown]
  - Menorrhagia [Unknown]
  - Sinus congestion [Unknown]
  - Vomiting [Unknown]
  - Abdominal pain lower [Unknown]
  - Emotional disorder [Unknown]
  - Acne [Unknown]
  - Premenstrual syndrome [Unknown]
  - Fluid retention [Unknown]
  - Headache [Unknown]
  - Adverse event [Unknown]
  - Breast tenderness [Unknown]
